FAERS Safety Report 25951347 (Version 1)
Quarter: 2025Q4

REPORT INFORMATION
  Report Type: Spontaneous
  Country: JP (occurrence: JP)
  Receive Date: 20251023
  Receipt Date: 20251023
  Transmission Date: 20260117
  Serious: Yes (Hospitalization)
  Sender: GLAXOSMITHKLINE
  Company Number: JP-GSKJP-JP2025116713AA

PATIENT
  Age: 62 Year
  Sex: Male

DRUGS (8)
  1. NUCALA [Suspect]
     Active Substance: MEPOLIZUMAB
     Indication: Chronic rhinosinusitis with nasal polyps
     Dosage: 100 MG, Q4W
  2. NUCALA [Suspect]
     Active Substance: MEPOLIZUMAB
     Indication: Chronic eosinophilic rhinosinusitis
  3. ARNUITY ELLIPTA [Suspect]
     Active Substance: FLUTICASONE FUROATE
     Dosage: UNK, 1D, 1 INHALATION
  4. PITAVASTATIN CALCIUM [Concomitant]
     Active Substance: PITAVASTATIN CALCIUM
     Dosage: UNK, 1D, AFTER DINNER
  5. AZILSARTAN KAMEDOXOMIL [Concomitant]
     Active Substance: AZILSARTAN KAMEDOXOMIL
     Dosage: UNK, 1D, AFTER BREAKFAST
  6. MONTELUKAST [Concomitant]
     Active Substance: MONTELUKAST
     Dosage: UNK, AT BEDTIME
  7. NASONEX [Concomitant]
     Active Substance: MOMETASONE FUROATE
     Dosage: UNK, 1D, 2 SPRAYS
  8. DUPIXENT [Concomitant]
     Active Substance: DUPILUMAB
     Dosage: 300 MG, Q2W

REACTIONS (6)
  - Gastroenteritis viral [Recovered/Resolved]
  - Gastroenteritis eosinophilic [Recovered/Resolved]
  - Abdominal pain [Recovering/Resolving]
  - Diarrhoea [Recovering/Resolving]
  - Enteritis [Unknown]
  - Bundle branch block right [Unknown]

NARRATIVE: CASE EVENT DATE: 20250731
